FAERS Safety Report 20154424 (Version 2)
Quarter: 2022Q3

REPORT INFORMATION
  Report Type: Spontaneous
  Country: CA (occurrence: CA)
  Receive Date: 20211207
  Receipt Date: 20220712
  Transmission Date: 20221026
  Serious: Yes (Other)
  Sender: FDA-Public Use
  Company Number: CA-GSKCCFAMERS-Case-01230603_AE-72148

PATIENT

DRUGS (3)
  1. VENTOLIN HFA [Suspect]
     Active Substance: ALBUTEROL SULFATE
     Indication: Asthma
     Dosage: UNK UNK, BID
     Route: 055
     Dates: start: 201908
  2. LATUDA [Suspect]
     Active Substance: LURASIDONE HYDROCHLORIDE
     Indication: Thyroid cancer
     Dosage: UNK
     Dates: start: 20210601
  3. LATUDA [Suspect]
     Active Substance: LURASIDONE HYDROCHLORIDE
     Indication: Mental disorder

REACTIONS (2)
  - Thyroid cancer [Unknown]
  - Agitation [Unknown]

NARRATIVE: CASE EVENT DATE: 20210601
